FAERS Safety Report 6107545-7 (Version None)
Quarter: 2009Q1

REPORT INFORMATION
  Report Type: 
  Country: None (occurrence: None)
  Receive Date: 20090309
  Receipt Date: 20090226
  Transmission Date: 20090719
  Serious: Yes (Hospitalization)
  Sender: FDA-Public Use
  Company Number: PHHY2009MX06792

PATIENT
  Sex: Male

DRUGS (3)
  1. TEGRETOL [Suspect]
     Indication: EPILEPSY
     Dosage: 5 TABLET (200 MG) PER DAY
     Route: 048
     Dates: start: 20050101
  2. TOPAMAX [Concomitant]
     Dosage: 3 TABLETS (25 MG)/ DAY
  3. TOPAMAX [Concomitant]
     Dosage: TO 5 TABLETS

REACTIONS (4)
  - BRAIN NEOPLASM [None]
  - CHEMOTHERAPY [None]
  - CONVULSION [None]
  - SURGERY [None]
